FAERS Safety Report 25749605 (Version 1)
Quarter: 2025Q3

REPORT INFORMATION
  Report Type: Report from Study
  Country: TW (occurrence: TW)
  Receive Date: 20250902
  Receipt Date: 20250902
  Transmission Date: 20251020
  Serious: Yes (Hospitalization, Other)
  Sender: Haleon PLC
  Company Number: TW-HALEON-2210760

PATIENT
  Age: 49 Year
  Sex: Male

DRUGS (2)
  1. DICLOFENAC [Suspect]
     Active Substance: DICLOFENAC
     Indication: Product used for unknown indication
  2. CLOXACILLIN [Suspect]
     Active Substance: CLOXACILLIN
     Indication: Product used for unknown indication

REACTIONS (7)
  - Stevens-Johnson syndrome [Unknown]
  - Blister [Unknown]
  - Mucosal inflammation [Unknown]
  - Skin exfoliation [Unknown]
  - Target skin lesion [Unknown]
  - Rash maculo-papular [Unknown]
  - Severe cutaneous adverse reaction [Unknown]
